FAERS Safety Report 5092164-4 (Version None)
Quarter: 2006Q3

REPORT INFORMATION
  Report Type: 
  Country: None (occurrence: None)
  Receive Date: 20060825
  Receipt Date: 20060811
  Transmission Date: 20061208
  Serious: Yes (Death)
  Sender: FDA-Public Use
  Company Number: 2006S1006409

PATIENT
  Age: 78 Year
  Sex: Male
  Weight: 54.4316 kg

DRUGS (13)
  1. CLOZAPINE [Suspect]
     Indication: BIPOLAR DISORDER
     Dosage: 25 MG; QAM; PO
     Route: 048
     Dates: end: 20060701
  2. CLOZAPINE [Suspect]
     Indication: SCHIZOPHRENIA, PARANOID TYPE
     Dosage: 25 MG; QAM; PO
     Route: 048
     Dates: end: 20060701
  3. CLOZAPINE [Suspect]
     Indication: BIPOLAR DISORDER
     Dosage: 100 MG; QHS; PO
     Route: 048
     Dates: end: 20060701
  4. CEFTRIAXONE (CON.) [Concomitant]
  5. AMOXICILLIN (CON.) [Concomitant]
  6. BENZATROPINE (CON.) [Concomitant]
  7. LITHIUM (CON .) [Concomitant]
  8. LEVOSALBUTAMOL (CON.) [Concomitant]
  9. MORNIFLUMATE [Concomitant]
  10. INSULIN (CON.) [Concomitant]
  11. LISINOPRIL (CON.) [Concomitant]
  12. HALOPERIDOL (CON.) [Concomitant]
  13. ROSIGLITAZONE MALEATE (CON.) [Concomitant]

REACTIONS (1)
  - NEOPLASM MALIGNANT [None]
